FAERS Safety Report 8001654-3 (Version None)
Quarter: 2011Q4

REPORT INFORMATION
  Report Type: 
  Country: None (occurrence: None)
  Receive Date: 20111219
  Receipt Date: 20111213
  Transmission Date: 20120403
  Serious: Yes (Other)
  Sender: FDA-Public Use
  Company Number: ACO_27561_2011

PATIENT
  Age: 59 Year
  Sex: Female

DRUGS (12)
  1. AMPYRA [Suspect]
     Indication: MULTIPLE SCLEROSIS
     Dosage: 10 MG
     Dates: start: 20110810
  2. PREMARIN [Concomitant]
  3. COLACE (DOCUSATE SODIUM) [Concomitant]
  4. ELMIRON [Concomitant]
  5. ASPIRIN [Concomitant]
  6. VITAMIN D /0031850/ (COLECALCIFEROL) [Concomitant]
  7. TYLENOL W/ CODEINE NO. 3 [Concomitant]
  8. NORTRIPTYLINE HCL [Concomitant]
  9. B-COMPLED /00003501/ (CALCIUM PANTOTHENATE, NICOTINAMIDE, PYRIDOXINE H [Concomitant]
  10. BENICAR [Concomitant]
  11. TEMAZEPAM [Concomitant]
  12. ZYRTEC [Concomitant]

REACTIONS (1)
  - BLOOD PRESSURE INCREASED [None]
